FAERS Safety Report 14963990 (Version 1)
Quarter: 2018Q2

REPORT INFORMATION
  Report Type: Spontaneous
  Country: US (occurrence: US)
  Receive Date: 20180601
  Receipt Date: 20180601
  Transmission Date: 20180711
  Serious: No
  Sender: FDA-Public Use
  Company Number: US-MYLANLABS-2018M1030807

PATIENT
  Sex: Female

DRUGS (1)
  1. XULANE [Suspect]
     Active Substance: ETHINYL ESTRADIOL\NORELGESTROMIN
     Indication: MENSTRUAL DISORDER
     Dosage: UNK
     Route: 062

REACTIONS (3)
  - Product packaging quantity issue [Unknown]
  - Off label use [Not Recovered/Not Resolved]
  - Menstrual disorder [Not Recovered/Not Resolved]
